FAERS Safety Report 12630716 (Version 4)
Quarter: 2018Q3

REPORT INFORMATION
  Report Type: Report from Study
  Country: US (occurrence: US)
  Receive Date: 20160808
  Receipt Date: 20180720
  Transmission Date: 20181010
  Serious: Yes (Congenital Anomaly)
  Sender: FDA-Public Use
  Company Number: US-KADMON PHARMACEUTICALS, LLC-KAD201608-002907

PATIENT
  Age: 4 Month
  Sex: Female

DRUGS (2)
  1. PEGYLATED INTERFERON ALPHA NOS [Suspect]
     Active Substance: PEGINTERFERON ALFA-2A OR PEGINTERFERON ALFA-2B
     Route: 064
  2. RIBAVIRIN. [Suspect]
     Active Substance: RIBAVIRIN
     Route: 064

REACTIONS (2)
  - Foetal exposure during pregnancy [Unknown]
  - Torticollis [Unknown]
